FAERS Safety Report 6628439-4 (Version None)
Quarter: 2010Q1

REPORT INFORMATION
  Report Type: 
  Country: None (occurrence: None)
  Receive Date: 20100311
  Receipt Date: 20100301
  Transmission Date: 20100710
  Serious: Yes (Other)
  Sender: FDA-Public Use
  Company Number: JP-PFIZER INC-2010023262

PATIENT
  Age: 42 Year
  Sex: Male
  Weight: 72 kg

DRUGS (2)
  1. ZITHROMAC SR [Suspect]
     Indication: PERICORONITIS
     Dosage: 2 G, 1X/DAY
     Route: 048
     Dates: start: 20100208, end: 20100208
  2. PONTAL [Concomitant]
     Indication: PERICORONITIS
     Route: 048
     Dates: start: 20100209, end: 20100209

REACTIONS (3)
  - DYSARTHRIA [None]
  - FEELING ABNORMAL [None]
  - RASH [None]
